FAERS Safety Report 10045045 (Version 1)
Quarter: 2014Q1

REPORT INFORMATION
  Report Type: Spontaneous
  Country: RU (occurrence: RU)
  Receive Date: 20140328
  Receipt Date: 20140328
  Transmission Date: 20141002
  Serious: Yes (Other)
  Sender: FDA-Public Use
  Company Number: PHHY2014RU034313

PATIENT
  Age: 29 Year
  Sex: Male

DRUGS (5)
  1. RIBAVIRIN [Suspect]
     Indication: HEPATITIS C VIRUS TEST POSITIVE
     Dosage: 1200 MG/DAY
  2. RIBAVIRIN [Suspect]
     Dosage: 600 MG/DAY
  3. PEGINTERFERON ALFA-2B [Suspect]
     Indication: HEPATITIS C VIRUS TEST POSITIVE
     Dosage: 120 UG/WEEK
  4. PEGINTERFERON ALFA-2B [Suspect]
     Dosage: 180 UG, QW
     Route: 058
  5. TELAPREVIR [Suspect]
     Indication: HEPATITIS C VIRUS TEST POSITIVE
     Dosage: 750 MG, TID

REACTIONS (13)
  - Telangiectasia [Unknown]
  - Fibrosis [Unknown]
  - Mucosal hyperaemia [Recovered/Resolved]
  - Throat irritation [Recovered/Resolved]
  - Oral mucosal erythema [Recovered/Resolved]
  - Oral disorder [Recovered/Resolved]
  - Tongue exfoliation [Recovered/Resolved]
  - Glossitis [Recovered/Resolved]
  - Neutrophil count decreased [Unknown]
  - Thrombocytopenia [Unknown]
  - Lymphopenia [Unknown]
  - Anaemia [Unknown]
  - No therapeutic response [Unknown]
